FAERS Safety Report 24636396 (Version 1)
Quarter: 2024Q4

REPORT INFORMATION
  Report Type: Spontaneous
  Country: US (occurrence: US)
  Receive Date: 20241119
  Receipt Date: 20241119
  Transmission Date: 20250114
  Serious: Yes (Other)
  Sender: NOVARTIS
  Company Number: US-002147023-NVSC2024US221561

PATIENT
  Age: 63 Year
  Sex: Female

DRUGS (10)
  1. TRAMETINIB [Suspect]
     Active Substance: TRAMETINIB
     Indication: Adenocarcinoma
     Dosage: UNK
     Route: 065
  2. TRAMETINIB [Suspect]
     Active Substance: TRAMETINIB
     Indication: Congenital female reproductive tract disorder
  3. DABRAFENIB [Suspect]
     Active Substance: DABRAFENIB
     Indication: Adenocarcinoma
     Dosage: UNK
     Route: 065
  4. DABRAFENIB [Suspect]
     Active Substance: DABRAFENIB
     Indication: Congenital female reproductive tract disorder
  5. CARBOPLATIN [Suspect]
     Active Substance: CARBOPLATIN
     Indication: Adenocarcinoma
     Dosage: UNK
     Route: 065
  6. CARBOPLATIN [Suspect]
     Active Substance: CARBOPLATIN
     Indication: Congenital female reproductive tract disorder
  7. PACLITAXEL [Suspect]
     Active Substance: PACLITAXEL
     Indication: Adenocarcinoma
     Dosage: UNK
     Route: 065
  8. PACLITAXEL [Suspect]
     Active Substance: PACLITAXEL
     Indication: Congenital female reproductive tract disorder
  9. ANASTROZOLE [Suspect]
     Active Substance: ANASTROZOLE
     Indication: Adenocarcinoma
     Dosage: UNK
     Route: 065
  10. ANASTROZOLE [Suspect]
     Active Substance: ANASTROZOLE
     Indication: Congenital female reproductive tract disorder
     Dosage: UNK
     Route: 065

REACTIONS (1)
  - Cardiotoxicity [Unknown]
